FAERS Safety Report 24047916 (Version 1)
Quarter: 2024Q3

REPORT INFORMATION
  Report Type: Spontaneous
  Country: ES (occurrence: ES)
  Receive Date: 20240703
  Receipt Date: 20240703
  Transmission Date: 20241017
  Serious: Yes (Other)
  Sender: DR REDDYS
  Company Number: None

PATIENT
  Age: 77 Year
  Sex: Male

DRUGS (8)
  1. DAPTOMYCIN [Suspect]
     Active Substance: DAPTOMYCIN
     Indication: Endocarditis
     Route: 042
     Dates: start: 20240326, end: 20240404
  2. OMEPRAZOLE [Concomitant]
     Active Substance: OMEPRAZOLE
     Indication: Product used for unknown indication
     Dosage: OMEPRAZOLE CINFAMED 20 MG HARD GASTRO-RESISTANT CAPSULES EFG, 28 CAPSULES
     Route: 048
     Dates: start: 20210913
  3. FUROSEMIDE [Concomitant]
     Active Substance: FUROSEMIDE
     Indication: Product used for unknown indication
     Dosage: FUROSEMIDE CINFA 40 MG EFG TABLETS, 30 TABLETS
     Route: 048
     Dates: start: 20211029
  4. LYRICA [Concomitant]
     Active Substance: PREGABALIN
     Indication: Product used for unknown indication
     Dosage: LYRICA 150 MG HARD CAPSULES, 56 CAPSULES
     Route: 048
     Dates: start: 20210504
  5. PRADAXA [Concomitant]
     Active Substance: DABIGATRAN ETEXILATE MESYLATE
     Indication: Product used for unknown indication
     Dosage: PRADAXA 150 MG HARD CAPSULES, 60 CAPSULES
     Route: 048
     Dates: start: 20240229
  6. NOLOTIL [Concomitant]
     Indication: Product used for unknown indication
     Dosage: NOLOTIL 575 MG HARD CAPSULES, 20 CAPSULES
     Route: 048
     Dates: start: 20220304
  7. BISOPROLOL [Concomitant]
     Active Substance: BISOPROLOL\BISOPROLOL FUMARATE
     Indication: Product used for unknown indication
     Dosage: EMCONCOR COR 2.5 MG FILM-COATED TABLETS, 28 TABLETS
     Route: 048
     Dates: start: 20211029
  8. ACETAMINOPHEN\TRAMADOL HYDROCHLORIDE [Concomitant]
     Active Substance: ACETAMINOPHEN\TRAMADOL HYDROCHLORIDE
     Indication: Product used for unknown indication
     Dosage: DILIBAN 75 MG/650 MG TABLETS, 60 TABLETS (BLISTER)
     Route: 048
     Dates: start: 20220314

REACTIONS (1)
  - Pneumonitis [Recovered/Resolved]

NARRATIVE: CASE EVENT DATE: 20240402
